FAERS Safety Report 7033952-4 (Version None)
Quarter: 2010Q4

REPORT INFORMATION
  Report Type: 
  Country: None (occurrence: None)
  Receive Date: 20101007
  Receipt Date: 20101005
  Transmission Date: 20110411
  Serious: Yes (Hospitalization)
  Sender: FDA-Public Use
  Company Number: DK-ABBOTT-09P-044-0601892-00

PATIENT
  Sex: Male
  Weight: 135 kg

DRUGS (8)
  1. HUMIRA [Suspect]
     Indication: PSORIASIS
     Route: 058
     Dates: start: 20090907, end: 20090907
  2. HUMIRA [Suspect]
     Dates: start: 20091012
  3. ALL OTHER NON-THERAPEUTIC PRODUCTS [Concomitant]
     Indication: PSORIASIS
     Dates: start: 20000101, end: 20050101
  4. METHOTREXATE [Concomitant]
     Indication: PSORIASIS
     Dosage: CUMULATIVE DOSE (TREATMENT NOT TOLERATED)
     Dates: start: 20060901, end: 20080924
  5. CYCLOSPORINE [Concomitant]
     Indication: PSORIASIS
     Dates: start: 20071026, end: 20080220
  6. CYCLOSPORINE [Concomitant]
     Dates: start: 20090928, end: 20100501
  7. RAPTIVE [Concomitant]
     Indication: PSORIASIS
     Dates: start: 20080207, end: 20080403
  8. INFLIXIMAB [Concomitant]
     Indication: PSORIASIS
     Dates: start: 20080430, end: 20081117

REACTIONS (1)
  - VIITH NERVE PARALYSIS [None]
